FAERS Safety Report 4734574-8 (Version None)
Quarter: 2005Q3

REPORT INFORMATION
  Report Type: 
  Country: None (occurrence: None)
  Receive Date: 20050729
  Receipt Date: 20050726
  Transmission Date: 20060218
  Serious: Yes (Life-Threatening, Hospitalization, Other)
  Sender: FDA-Public Use
  Company Number: USA-2005-0020868

PATIENT
  Sex: Male
  Weight: 40.8 kg

DRUGS (5)
  1. OXYCONTIN [Suspect]
     Dosage: 80 MG, SEE IMAGE
  2. PERCODAN (OXYCODONE TEREPHTHALATE, PHENACETIN, HOMATROPINE TEREPHTHALA [Concomitant]
     Dosage: SEE IMAGE
  3. PERCOCET [Suspect]
     Dosage: 20 MG, SEE IMAGE
  4. XANAX [Suspect]
     Dosage: 20 MG, DAILY
  5. SOMA [Suspect]
     Dosage: SEE IMAGE

REACTIONS (7)
  - AMNESIA [None]
  - COMA [None]
  - DEPRESSED LEVEL OF CONSCIOUSNESS [None]
  - FAECAL INCONTINENCE [None]
  - INTENTIONAL MISUSE [None]
  - POLYSUBSTANCE ABUSE [None]
  - SELF-MEDICATION [None]
